FAERS Safety Report 22357500 (Version 3)
Quarter: 2023Q2

REPORT INFORMATION
  Report Type: Spontaneous
  Country: US (occurrence: US)
  Receive Date: 20230524
  Receipt Date: 20230619
  Transmission Date: 20230722
  Serious: No
  Sender: FDA-Public Use
  Company Number: US-SA-SAC20230519000790

PATIENT
  Age: 56 Year
  Sex: Female
  Weight: 63 kg

DRUGS (2)
  1. CAPRELSA [Suspect]
     Active Substance: VANDETANIB
     Indication: Thyroid cancer
     Dosage: 300 MG, QD
     Route: 048
     Dates: start: 20230511
  2. CAPRELSA [Suspect]
     Active Substance: VANDETANIB
     Indication: Bone cancer

REACTIONS (8)
  - Heart rate decreased [Unknown]
  - Dizziness [Unknown]
  - Dyspepsia [Unknown]
  - Asthenia [Unknown]
  - Hypertension [Unknown]
  - Rash papular [Unknown]
  - Fatigue [Unknown]
  - Dyspnoea [Unknown]

NARRATIVE: CASE EVENT DATE: 20230501
